FAERS Safety Report 24299491 (Version 1)
Quarter: 2024Q3

REPORT INFORMATION
  Report Type: Spontaneous
  Country: US (occurrence: None)
  Receive Date: 20240906
  Receipt Date: 20240906
  Transmission Date: 20241017
  Serious: Yes (Other)
  Sender: Public
  Company Number: None

PATIENT
  Age: 67 Year
  Sex: Female
  Weight: 54 kg

DRUGS (2)
  1. PRIVIGEN [Suspect]
     Active Substance: HUMAN IMMUNOGLOBULIN G
     Indication: Guillain-Barre syndrome
     Dates: start: 202408, end: 20240822
  2. HYDROCORTISONE [Suspect]
     Active Substance: HYDROCORTISONE\HYDROCORTISONE ACETATE

REACTIONS (12)
  - Headache [None]
  - Rash vesicular [None]
  - Rash [None]
  - Rash [None]
  - Rash [None]
  - Infusion related reaction [None]
  - Pyrexia [None]
  - Muscle spasms [None]
  - Back pain [None]
  - Nervous system disorder [None]
  - Infusion site rash [None]
  - Pain [None]

NARRATIVE: CASE EVENT DATE: 20240820
